FAERS Safety Report 6722698-5 (Version None)
Quarter: 2010Q2

REPORT INFORMATION
  Report Type: 
  Country: None (occurrence: None)
  Receive Date: 20100512
  Receipt Date: 20100430
  Transmission Date: 20101027
  Serious: Yes (Other)
  Sender: FDA-Public Use
  Company Number: DE-GILEAD-2010-0027585

PATIENT
  Sex: Female
  Weight: 63 kg

DRUGS (9)
  1. VIREAD [Suspect]
     Indication: HIV INFECTION
     Route: 048
     Dates: start: 20030805, end: 20100310
  2. VIREAD [Suspect]
     Dates: start: 20030712
  3. KALETRA [Concomitant]
     Indication: HIV INFECTION
     Dates: start: 20030712
  4. NOVAMINSULFON [Concomitant]
     Indication: PAIN
     Dates: start: 20091021
  5. TRAMADOL HCL [Concomitant]
     Indication: PAIN
     Dates: start: 20100303
  6. OPIPRAMOL [Concomitant]
     Indication: SLEEP DISORDER
  7. L-THYROX [Concomitant]
     Indication: HYPOTHYROIDISM
  8. OMPEPRAZOL [Concomitant]
  9. SPIROBETA [Concomitant]
     Indication: PORTAL HYPERTENSION

REACTIONS (5)
  - HYPOPHOSPHATAEMIA [None]
  - OSTEOMALACIA [None]
  - OSTEOPOROSIS [None]
  - PATHOLOGICAL FRACTURE [None]
  - RENAL FAILURE [None]
